FAERS Safety Report 24187725 (Version 1)
Quarter: 2024Q3

REPORT INFORMATION
  Report Type: Report from Study
  Country: CA (occurrence: None)
  Receive Date: 20240808
  Receipt Date: 20240808
  Transmission Date: 20241017
  Serious: Yes (Other)
  Sender: ASTRAZENECA
  Company Number: 2021A645940

PATIENT
  Sex: Female

DRUGS (15)
  1. FASENRA [Suspect]
     Active Substance: BENRALIZUMAB
     Indication: Asthma
     Dosage: 30.0MG UNKNOWN
     Route: 058
     Dates: start: 20190709
  2. FASENRA [Suspect]
     Active Substance: BENRALIZUMAB
     Indication: Asthma
     Dosage: 30.0MG UNKNOWN
     Route: 058
     Dates: start: 20210526
  3. PREDNISONE [Concomitant]
     Active Substance: PREDNISONE
  4. BREO ELLIPTA [Concomitant]
     Active Substance: FLUTICASONE FUROATE\VILANTEROL TRIFENATATE
  5. METFORMIN [Concomitant]
     Active Substance: METFORMIN HYDROCHLORIDE
  6. OXYCODONE AND OXYNEO [Concomitant]
  7. IRON [Concomitant]
     Active Substance: IRON
  8. CRESTOR [Concomitant]
     Active Substance: ROSUVASTATIN CALCIUM
  9. ALBUTEROL [Concomitant]
     Active Substance: ALBUTEROL
  10. MACROBID [Concomitant]
     Active Substance: NITROFURANTOIN\NITROFURANTOIN MONOHYDRATE
  11. LYRICA [Concomitant]
     Active Substance: PREGABALIN
  12. ZOPICLONE [Concomitant]
     Active Substance: ZOPICLONE
  13. INCRUSE ELLIPTA [Concomitant]
  14. LASIX [Concomitant]
     Active Substance: FUROSEMIDE
  15. CBD OIL AND THC [Concomitant]

REACTIONS (6)
  - Skin cancer [Unknown]
  - Pneumothorax [Unknown]
  - Chest pain [Unknown]
  - Asthma [Unknown]
  - Lung opacity [Unknown]
  - Drug ineffective [Unknown]
